FAERS Safety Report 8761979 (Version 2)
Quarter: 2016Q1

REPORT INFORMATION
  Report Type: Spontaneous
  Country: US (occurrence: US)
  Receive Date: 20120830
  Receipt Date: 20160223
  Transmission Date: 20160526
  Serious: Yes (Other)
  Sender: FDA-Public Use
  Company Number: US-ASTRAZENECA-2012SE28376

PATIENT
  Age: 75 Year
  Sex: Female

DRUGS (4)
  1. GAVISCON [Concomitant]
     Active Substance: ALUMINUM HYDROXIDE\MAGNESIUM CARBONATE
  2. NEXIUM [Suspect]
     Active Substance: ESOMEPRAZOLE MAGNESIUM
     Route: 048
  3. CLONIDINE. [Concomitant]
     Active Substance: CLONIDINE
  4. NORVASC [Concomitant]
     Active Substance: AMLODIPINE BESYLATE

REACTIONS (7)
  - Headache [Unknown]
  - Glaucoma [Unknown]
  - Drug ineffective [Unknown]
  - Hypertension [Unknown]
  - Stress [Unknown]
  - Drug dispensing error [Unknown]
  - Product quality issue [Unknown]

NARRATIVE: CASE EVENT DATE: 2011
